FAERS Safety Report 9644971 (Version 1)
Quarter: 2013Q4

REPORT INFORMATION
  Report Type: Spontaneous
  Country: US (occurrence: US)
  Receive Date: 20131025
  Receipt Date: 20131025
  Transmission Date: 20140711
  Serious: No
  Sender: FDA-Public Use
  Company Number: US-PFIZER INC-2013302365

PATIENT
  Age: 95 Year
  Sex: Female
  Weight: 56.69 kg

DRUGS (3)
  1. LYRICA [Suspect]
     Indication: HERPES ZOSTER
     Dosage: 150 MG, 2X/DAY
     Route: 048
     Dates: end: 201301
  2. LORTAB [Concomitant]
     Indication: ARTHRALGIA
     Dosage: UNK
  3. AMLODIPINE/BENAZEPRIL [Concomitant]
     Indication: HYPERTENSION
     Dosage: UNK

REACTIONS (3)
  - Malaise [Recovered/Resolved]
  - Formication [Recovered/Resolved]
  - Feeling abnormal [Recovered/Resolved]
